FAERS Safety Report 7740884-2 (Version None)
Quarter: 2011Q3

REPORT INFORMATION
  Report Type: 
  Country: None (occurrence: None)
  Receive Date: 20110909
  Receipt Date: 20110901
  Transmission Date: 20111222
  Serious: Yes (Hospitalization, Disabling)
  Sender: FDA-Public Use
  Company Number: PHHY2011GB77614

PATIENT
  Age: 76 Year
  Sex: Male

DRUGS (9)
  1. IVABRADINE [Suspect]
     Indication: ANGINA PECTORIS
     Dosage: 5 MG, QD
     Route: 048
     Dates: start: 20110301, end: 20110817
  2. LANSOPRAZOLE [Concomitant]
     Dosage: UNK UKN, UNK
  3. ATORVASTATIN [Concomitant]
     Dosage: UNK UKN, UNK
  4. EZETIMIBE [Concomitant]
     Dosage: UNK UKN, UNK
  5. FELODIPINE [Concomitant]
     Dosage: UNK UKN, UNK
     Dates: end: 20110801
  6. RAMIPRIL [Suspect]
     Indication: HYPERTENSION
     Dosage: 2.5 MG, QD
     Route: 048
     Dates: start: 20110803
  7. FUROSEMIDE [Concomitant]
     Dosage: UNK UKN, UNK
  8. ISOSORBIDE MONONITRATE [Concomitant]
     Dosage: UNK UKN, UNK
  9. CLOPIDOGREL [Concomitant]
     Dosage: UNK UKN, UNK

REACTIONS (4)
  - DYSPNOEA [None]
  - PULMONARY FIBROSIS [None]
  - LUNG DISORDER [None]
  - WEIGHT DECREASED [None]
